FAERS Safety Report 7940355-4 (Version None)
Quarter: 2011Q4

REPORT INFORMATION
  Report Type: 
  Country: None (occurrence: None)
  Receive Date: 20111127
  Receipt Date: 20111115
  Transmission Date: 20120403
  Serious: Yes (Hospitalization, Other)
  Sender: FDA-Public Use
  Company Number: US-ELI_LILLY_AND_COMPANY-US201011001154

PATIENT
  Sex: Female

DRUGS (4)
  1. FORTEO [Suspect]
     Indication: OSTEOPOROSIS
     Dosage: 20 UG, DAILY (1/D)
     Route: 065
     Dates: start: 20101027
  2. FORTEO [Suspect]
     Dosage: 20 UG, QD
  3. FORTEO [Suspect]
     Dosage: 20 UG, DAILY (1/D)
  4. FORTEO [Suspect]
     Dosage: 20 UG, QD

REACTIONS (8)
  - BLOOD CALCIUM INCREASED [None]
  - FALL [None]
  - GASTROINTESTINAL DISORDER [None]
  - DIZZINESS [None]
  - INJECTION SITE HAEMATOMA [None]
  - HOSPITALISATION [None]
  - INCREASED TENDENCY TO BRUISE [None]
  - VERTIGO [None]
